FAERS Safety Report 7597073-4 (Version None)
Quarter: 2011Q3

REPORT INFORMATION
  Report Type: 
  Country: None (occurrence: None)
  Receive Date: 20110708
  Receipt Date: 20110627
  Transmission Date: 20111222
  Serious: Yes (Hospitalization)
  Sender: FDA-Public Use
  Company Number: FR-EISAI INC-E3810-04776-SPO-FR

PATIENT
  Age: 63 Year
  Sex: Male

DRUGS (4)
  1. ACETAMINOPHEN [Concomitant]
     Route: 065
  2. RABEPRAZOLE SODIUM [Suspect]
     Indication: ILL-DEFINED DISORDER
     Route: 048
  3. VOLTAREN [Suspect]
  4. VOLTAREN [Suspect]
     Indication: ARTHRALGIA
     Route: 065

REACTIONS (6)
  - ANAEMIA [None]
  - DRUG INEFFECTIVE [None]
  - GASTRIC ULCER [None]
  - HYPOTENSION [None]
  - GASTROINTESTINAL HAEMORRHAGE [None]
  - MELAENA [None]
